FAERS Safety Report 5942204-2 (Version None)
Quarter: 2008Q4

REPORT INFORMATION
  Report Type: 
  Country: None (occurrence: None)
  Receive Date: 20081031
  Receipt Date: 20081020
  Transmission Date: 20090506
  Serious: Yes (Death)
  Sender: FDA-Public Use
  Company Number: US024900

PATIENT
  Age: 83 Year
  Sex: Male
  Weight: 43.0917 kg

DRUGS (10)
  1. ACTIQ [Suspect]
     Indication: BACK PAIN
     Dosage: 600 UG QD BUCCAL
     Route: 002
     Dates: start: 20050101, end: 20080912
  2. ACTIQ [Suspect]
     Indication: PAIN IN EXTREMITY
     Dosage: 600 UG QD BUCCAL
     Route: 002
     Dates: start: 20050101, end: 20080912
  3. OXYCODONE HCL [Concomitant]
  4. PERCOCET [Concomitant]
  5. LIPITOR [Concomitant]
  6. LASIX [Concomitant]
  7. ZEMPLAR [Concomitant]
  8. ASPIRIN [Concomitant]
  9. LEVEMIR [Concomitant]
  10. VITAMIN B-12 [Concomitant]

REACTIONS (1)
  - FAILURE TO THRIVE [None]
